FAERS Safety Report 5376154-X (Version None)
Quarter: 2007Q3

REPORT INFORMATION
  Report Type: 
  Country: None (occurrence: None)
  Receive Date: 20070702
  Receipt Date: 20070622
  Transmission Date: 20080115
  Serious: Yes (Hospitalization)
  Sender: FDA-Public Use
  Company Number: DE-ASTRAZENECA-2007PK01298

PATIENT
  Age: 63 Year
  Sex: Female

DRUGS (17)
  1. SEROQUEL [Suspect]
     Route: 048
     Dates: start: 20070405, end: 20070406
  2. SEROQUEL [Suspect]
     Route: 048
     Dates: start: 20070407, end: 20070412
  3. PANTOZOL [Concomitant]
     Route: 048
     Dates: start: 20070101
  4. CIPRALEX [Concomitant]
     Route: 048
     Dates: start: 20070321, end: 20070322
  5. CIPRALEX [Concomitant]
     Route: 048
     Dates: start: 20070323, end: 20070328
  6. CIPRALEX [Concomitant]
     Route: 048
     Dates: start: 20070329, end: 20070402
  7. CIPRALEX [Concomitant]
     Route: 048
     Dates: start: 20070403
  8. RISPERDAL [Concomitant]
     Route: 048
     Dates: start: 20070119, end: 20070205
  9. RISPERDAL [Concomitant]
     Route: 048
     Dates: start: 20070206, end: 20070225
  10. RISPERDAL [Concomitant]
     Route: 048
     Dates: start: 20070226, end: 20070305
  11. RISPERDAL [Concomitant]
     Route: 048
     Dates: start: 20070306, end: 20070327
  12. RISPERDAL [Concomitant]
     Route: 048
     Dates: start: 20070328, end: 20070402
  13. RISPERDAL [Concomitant]
     Route: 048
     Dates: start: 20070403
  14. RISPERDAL [Concomitant]
     Route: 048
     Dates: start: 20070404
  15. DOXEPIN HCL [Concomitant]
     Route: 048
     Dates: start: 20070119, end: 20070320
  16. DOXEPIN HCL [Concomitant]
     Route: 048
     Dates: start: 20070321, end: 20070325
  17. DOXEPIN HCL [Concomitant]
     Route: 048
     Dates: start: 20070326, end: 20070403

REACTIONS (1)
  - RESTLESS LEGS SYNDROME [None]
